FAERS Safety Report 4782519-7 (Version None)
Quarter: 2005Q3

REPORT INFORMATION
  Report Type: 
  Country: None (occurrence: None)
  Receive Date: 20050929
  Receipt Date: 20050208
  Transmission Date: 20060218
  Serious: No
  Sender: FDA-Public Use
  Company Number: 400485

PATIENT
  Age: 58 Year
  Sex: Male

DRUGS (7)
  1. COREG [Suspect]
     Dosage: 25MG TWICE PER DAY
     Route: 048
     Dates: start: 20030701
  2. CAPTOPRIL [Concomitant]
  3. INSULIN [Concomitant]
     Route: 042
  4. PROTONIX [Concomitant]
  5. CRESTOR [Concomitant]
  6. ZETIA [Concomitant]
  7. NOVOLOG [Concomitant]

REACTIONS (9)
  - ASTHENIA [None]
  - BLOOD GLUCOSE INCREASED [None]
  - DIZZINESS [None]
  - DYSPEPSIA [None]
  - DYSPNOEA [None]
  - HYPERHIDROSIS [None]
  - HYPOTENSION [None]
  - PALPITATIONS [None]
  - POLLAKIURIA [None]
